FAERS Safety Report 8636876 (Version 2)
Quarter: 2012Q4

REPORT INFORMATION
  Report Type: 
  Country: TR (occurrence: TR)
  Receive Date: 20120626
  Receipt Date: 20120928
  Transmission Date: 20130627
  Serious: Yes (Hospitalization)
  Sender: FDA-Public Use
  Company Number: PHHY2012TR054478

PATIENT
  Age: 77 Year
  Sex: Male

DRUGS (4)
  1. EXELON PATCH [Suspect]
     Dosage: UNK UKN, UNK
  2. LANSOPRAZOLE [Concomitant]
  3. REMERON [Concomitant]
  4. DESYREL [Concomitant]

REACTIONS (1)
  - Ill-defined disorder [Unknown]
